FAERS Safety Report 8305580-1 (Version None)
Quarter: 2012Q2

REPORT INFORMATION
  Report Type: 
  Country: None (occurrence: None)
  Receive Date: 20120423
  Receipt Date: 20120416
  Transmission Date: 20120825
  Serious: Yes (Disabling)
  Sender: FDA-Public Use
  Company Number: US-SANOFI-AVENTIS-2012SA026208

PATIENT
  Sex: Female

DRUGS (2)
  1. SOLOSTAR [Suspect]
     Indication: TYPE 2 DIABETES MELLITUS
  2. LANTUS [Suspect]
     Indication: TYPE 2 DIABETES MELLITUS
     Dosage: MORNING AND NIGHT DOSE:23 UNIT(S)
     Route: 058

REACTIONS (5)
  - BACK DISORDER [None]
  - ILL-DEFINED DISORDER [None]
  - SINUSITIS [None]
  - HYPOACUSIS [None]
  - VISUAL IMPAIRMENT [None]
